FAERS Safety Report 10346509 (Version 2)
Quarter: 2014Q3

REPORT INFORMATION
  Report Type: Spontaneous
  Country: US (occurrence: US)
  Receive Date: 20140729
  Receipt Date: 20140729
  Transmission Date: 20150326
  Serious: Yes (Other)
  Sender: FDA-Public Use
  Company Number: PHHY2014US089872

PATIENT
  Age: 48 Year
  Sex: Female

DRUGS (11)
  1. CALCIUM CARBONATE. [Concomitant]
     Active Substance: CALCIUM CARBONATE
  2. NYSTATIN. [Concomitant]
     Active Substance: NYSTATIN
     Indication: OESOPHAGEAL CANDIDIASIS
     Dosage: 500000 U, PER 5ML PRN
     Route: 048
  3. VORICONAZOLE. [Interacting]
     Active Substance: VORICONAZOLE
     Indication: OESOPHAGEAL CANDIDIASIS
     Dosage: 200 MG, Q12H
     Route: 048
  4. LOSARTAN [Concomitant]
     Active Substance: LOSARTAN
  5. HYDROCODONE BIT/APAP [Concomitant]
     Active Substance: ACETAMINOPHEN\HYDROCODONE BITARTRATE
  6. FAMOTIDINE. [Concomitant]
     Active Substance: FAMOTIDINE
  7. MIRTAZAPINE. [Concomitant]
     Active Substance: MIRTAZAPINE
  8. CITRIC ACID [Concomitant]
     Active Substance: CITRIC ACID MONOHYDRATE
  9. FLUCONAZOLE. [Concomitant]
     Active Substance: FLUCONAZOLE
     Indication: OESOPHAGEAL CANDIDIASIS
     Dosage: 200 MG, PER DAY
     Route: 048
  10. BUDESONIDE. [Suspect]
     Active Substance: BUDESONIDE
     Indication: CROHN^S DISEASE
     Dosage: 9 MG, PER DAY
     Route: 048
  11. SODIUM CITRATE [Concomitant]
     Active Substance: SODIUM CITRATE

REACTIONS (9)
  - Oedema peripheral [Recovering/Resolving]
  - Fatigue [Recovering/Resolving]
  - Fat tissue increased [Recovering/Resolving]
  - Weight increased [Recovering/Resolving]
  - Blood pressure increased [Recovering/Resolving]
  - Cushing^s syndrome [Recovering/Resolving]
  - Cushingoid [Recovering/Resolving]
  - Drug interaction [Unknown]
  - Dysphagia [Recovering/Resolving]
